FAERS Safety Report 21567179 (Version 1)
Quarter: 2022Q4

REPORT INFORMATION
  Report Type: Spontaneous
  Country: US (occurrence: US)
  Receive Date: 20221108
  Receipt Date: 20221108
  Transmission Date: 20230113
  Serious: No
  Sender: FDA-Public Use
  Company Number: US-SA-SAC20221101000481

PATIENT
  Sex: Female

DRUGS (1)
  1. DUPIXENT [Suspect]
     Active Substance: DUPILUMAB
     Indication: Dermatitis atopic
     Dosage: 300 MG , OTHER
     Route: 058

REACTIONS (4)
  - Injection site urticaria [Unknown]
  - Asthma [Unknown]
  - Dermatitis atopic [Unknown]
  - Therapeutic response shortened [Unknown]
